FAERS Safety Report 11145487 (Version 2)
Quarter: 2016Q1

REPORT INFORMATION
  Report Type: Spontaneous
  Country: US (occurrence: US)
  Receive Date: 20150526
  Receipt Date: 20160303
  Transmission Date: 20160525
  Serious: Yes (Other)
  Sender: FDA-Public Use
  Company Number: US-ABBVIE-15P-163-1393686-00

PATIENT
  Sex: Female

DRUGS (1)
  1. HUMIRA [Suspect]
     Active Substance: ADALIMUMAB
     Indication: ANKYLOSING SPONDYLITIS
     Route: 058

REACTIONS (8)
  - Pain [Unknown]
  - Chronic lymphocytic leukaemia [Unknown]
  - Drug ineffective [Unknown]
  - Rash [Unknown]
  - Diarrhoea [Unknown]
  - Meningitis [Unknown]
  - Malaise [Unknown]
  - Vomiting [Unknown]
